FAERS Safety Report 10257722 (Version 1)
Quarter: 2014Q2

REPORT INFORMATION
  Report Type: Spontaneous
  Country: MN (occurrence: None)
  Receive Date: 20140620
  Receipt Date: 20140620
  Transmission Date: 20141212
  Serious: Yes (Death)
  Sender: FDA-Public Use
  Company Number: 2014MN00542

PATIENT
  Age: 72 Year
  Sex: Male

DRUGS (3)
  1. IRINOTECAN (IRINOTECAN) INJECTION, 180 MG/M2 [Suspect]
     Indication: COLON CANCER STAGE II
     Dosage: 180MG/M2, ON DAY 1, INTRAVENOUS
     Route: 042
  2. LEUCOVORIN (LEUCOVORIN) 400 MG/M2 [Suspect]
     Indication: COLON CANCER STAGE III
     Dosage: 400 MG/M2 ON DAY 1 INTRAVENOUS
     Route: 042
  3. 5 FLUOROURACIL (5 FLUOROURACIL ) 400 MG/M2 [Suspect]
     Indication: COLON CANCER STAGE III
     Dosage: 400MG/M2, BOLUS DOSING ON DAY 1, INTRAVENOUS
     Route: 042

REACTIONS (2)
  - Pulmonary embolism [None]
  - Sudden death [None]
